FAERS Safety Report 12555503 (Version 1)
Quarter: 2016Q3

REPORT INFORMATION
  Report Type: Spontaneous
  Country: US (occurrence: None)
  Receive Date: 20160713
  Receipt Date: 20160713
  Transmission Date: 20161109
  Serious: Yes (Other)
  Sender: FDA-Public Use
  Company Number: None

PATIENT
  Age: 75 Year
  Sex: Male

DRUGS (8)
  1. ZYTIGA [Suspect]
     Active Substance: ABIRATERONE ACETATE
     Indication: PROSTATE CANCER
     Route: 048
     Dates: start: 20130215
  2. WELLBUTRIN [Concomitant]
     Active Substance: BUPROPION HYDROCHLORIDE
  3. VITAMIN D [Concomitant]
     Active Substance: CHOLECALCIFEROL
  4. CASODEX [Concomitant]
     Active Substance: BICALUTAMIDE
  5. PREDNISONE. [Concomitant]
     Active Substance: PREDNISONE
  6. ALEVE [Concomitant]
     Active Substance: NAPROXEN SODIUM
  7. CALCIUM [Concomitant]
     Active Substance: CALCIUM
  8. ZOMETA [Concomitant]
     Active Substance: ZOLEDRONIC ACID

REACTIONS (2)
  - Osteomyelitis [None]
  - Tooth loss [None]

NARRATIVE: CASE EVENT DATE: 20160425
